FAERS Safety Report 8204883-9 (Version None)
Quarter: 2012Q1

REPORT INFORMATION
  Report Type: 
  Country: None (occurrence: None)
  Receive Date: 20120313
  Receipt Date: 20120229
  Transmission Date: 20120608
  Serious: Yes (Hospitalization, Other)
  Sender: FDA-Public Use
  Company Number: BR-ELI_LILLY_AND_COMPANY-BR201203000071

PATIENT
  Sex: Female

DRUGS (4)
  1. FORTEO [Suspect]
     Indication: OSTEOPOROSIS
     Dosage: 20 UG, QD
     Route: 058
     Dates: start: 20110801
  2. BUPROPION HCL [Concomitant]
     Indication: DEPRESSION
     Dosage: 450 MG, QD
     Route: 065
  3. CYMBALTA [Concomitant]
     Indication: DEPRESSION
     Dosage: 60 MG, BID
     Route: 065
  4. VALIUM [Concomitant]
     Indication: NERVOUSNESS
     Dosage: UNK, UNKNOWN
     Route: 065

REACTIONS (5)
  - ACCIDENTAL EXPOSURE [None]
  - PROCEDURAL COMPLICATION [None]
  - LOWER LIMB FRACTURE [None]
  - COMPLICATION OF DEVICE INSERTION [None]
  - PROCEDURAL HAEMORRHAGE [None]
